FAERS Safety Report 6874389-8 (Version None)
Quarter: 2010Q3

REPORT INFORMATION
  Report Type: 
  Country: None (occurrence: None)
  Receive Date: 20100723
  Receipt Date: 20090616
  Transmission Date: 20110219
  Serious: No
  Sender: FDA-Public Use
  Company Number: US-PFIZER INC-2009197991

PATIENT
  Sex: Male

DRUGS (3)
  1. CHANTIX [Suspect]
     Dosage: UNK
  2. VICODIN [Interacting]
     Dosage: UNK
  3. ADDERALL 10 [Concomitant]
     Dosage: UNK

REACTIONS (11)
  - ABDOMINAL PAIN UPPER [None]
  - ANHEDONIA [None]
  - CONFUSIONAL STATE [None]
  - DRUG DOSE OMISSION [None]
  - DRUG INTERACTION [None]
  - FEELING ABNORMAL [None]
  - HEADACHE [None]
  - INAPPROPRIATE SCHEDULE OF DRUG ADMINISTRATION [None]
  - MEMORY IMPAIRMENT [None]
  - PAIN [None]
  - TOBACCO WITHDRAWAL SYMPTOMS [None]
